FAERS Safety Report 7096356-4 (Version None)
Quarter: 2010Q4

REPORT INFORMATION
  Report Type: 
  Country: None (occurrence: None)
  Receive Date: 20101111
  Receipt Date: 20090831
  Transmission Date: 20110411
  Serious: No
  Sender: FDA-Public Use
  Company Number: US-KINGPHARMUSA00001-K200901078

PATIENT

DRUGS (1)
  1. BICILLIN L-A [Suspect]
     Dosage: UNK

REACTIONS (1)
  - SKIN DISCOLOURATION [None]
